FAERS Safety Report 25987348 (Version 1)
Quarter: 2025Q4

REPORT INFORMATION
  Report Type: Spontaneous
  Country: EU (occurrence: EU)
  Receive Date: 20251103
  Receipt Date: 20251103
  Transmission Date: 20260117
  Serious: No
  Sender: ALKEM
  Company Number: EU-ALKEM LABORATORIES LIMITED-DE-ALKEM-2025-01552

PATIENT
  Age: 62 Year
  Sex: Male
  Weight: 101 kg

DRUGS (2)
  1. IBUPROFEN [Suspect]
     Active Substance: IBUPROFEN
     Indication: Product used for unknown indication
     Dosage: UNK
     Route: 065
  2. BUPRENORPHINE [Suspect]
     Active Substance: BUPRENORPHINE
     Indication: Pain
     Dosage: UNK
     Route: 062

REACTIONS (5)
  - Weight increased [Unknown]
  - Constipation [Unknown]
  - Dyspepsia [Unknown]
  - Nausea [Unknown]
  - Therapeutic product effect incomplete [Unknown]
